FAERS Safety Report 19927108 (Version 1)
Quarter: 2021Q4

REPORT INFORMATION
  Report Type: Spontaneous
  Country: CN (occurrence: CN)
  Receive Date: 20211006
  Receipt Date: 20211006
  Transmission Date: 20220304
  Serious: Yes (Hospitalization)
  Sender: FDA-Public Use
  Company Number: CN-BAXTER-2021BAX023643

PATIENT
  Age: 6 Year
  Sex: Male
  Weight: 24 kg

DRUGS (11)
  1. CYCLOPHOSPHAMIDE [Suspect]
     Active Substance: CYCLOPHOSPHAMIDE
     Indication: Rhabdomyosarcoma
     Dosage: DILUTED WITH 250 ML GS
     Route: 041
     Dates: start: 20191114, end: 20191114
  2. CYCLOPHOSPHAMIDE [Suspect]
     Active Substance: CYCLOPHOSPHAMIDE
     Dosage: DOSE REINTRODUCE
     Route: 041
  3. DEXTROSE [Suspect]
     Active Substance: DEXTROSE
     Indication: Medication dilution
     Dosage: USE AS DILUENT FOR ENDOXAN
     Route: 041
     Dates: start: 20191114, end: 20191114
  4. DEXTROSE [Suspect]
     Active Substance: DEXTROSE
     Dosage: USE AS DILUENT FOR DOXORUBICIN
     Route: 042
     Dates: start: 20191114, end: 20191115
  5. DEXTROSE [Suspect]
     Active Substance: DEXTROSE
     Dosage: DOSE REINTRODUCE
     Route: 041
  6. SODIUM CHLORIDE [Suspect]
     Active Substance: SODIUM CHLORIDE
     Indication: Medication dilution
     Route: 041
     Dates: start: 20191114, end: 20191114
  7. SODIUM CHLORIDE [Suspect]
     Active Substance: SODIUM CHLORIDE
     Route: 041
  8. VINDESINE SULFATE [Suspect]
     Active Substance: VINDESINE SULFATE
     Indication: Rhabdomyosarcoma
     Dosage: DILUTED WITH SODIUM CHLORIDE INJECTION 500 ML
     Route: 041
     Dates: start: 20191114, end: 20191114
  9. VINDESINE SULFATE [Suspect]
     Active Substance: VINDESINE SULFATE
     Dosage: DOSE REINTRODUCE
     Route: 041
  10. DOXORUBICIN HYDROCHLORIDE [Suspect]
     Active Substance: DOXORUBICIN HYDROCHLORIDE
     Indication: Rhabdomyosarcoma
     Dosage: LIFESTYLE NEEDLE (SELF-PREPARED) ?DILUTED WITH 250ML GS
     Route: 041
     Dates: start: 20191114, end: 20191115
  11. DOXORUBICIN HYDROCHLORIDE [Suspect]
     Active Substance: DOXORUBICIN HYDROCHLORIDE
     Dosage: DOSE REINTRODUCE
     Route: 041

REACTIONS (1)
  - Myelosuppression [Recovering/Resolving]

NARRATIVE: CASE EVENT DATE: 20191125
